FAERS Safety Report 10042848 (Version 1)
Quarter: 2014Q1

REPORT INFORMATION
  Report Type: Report from Study
  Country: CL (occurrence: CL)
  Receive Date: 20140327
  Receipt Date: 20140327
  Transmission Date: 20141002
  Serious: Yes (Life-Threatening, Hospitalization, Other)
  Sender: FDA-Public Use
  Company Number: PHHY2014CL037347

PATIENT
  Age: 21 Year
  Sex: Male

DRUGS (2)
  1. LEPONEX [Suspect]
     Dosage: UNK UKN, UNK
     Dates: start: 20120830, end: 20130608
  2. LEPONEX [Suspect]
     Dosage: UNK UKN, UNK
     Dates: start: 20140321

REACTIONS (2)
  - Suicide attempt [Unknown]
  - Self injurious behaviour [Unknown]
